FAERS Safety Report 8231792-1 (Version None)
Quarter: 2012Q1

REPORT INFORMATION
  Report Type: 
  Country: None (occurrence: None)
  Receive Date: 20120323
  Receipt Date: 20120321
  Transmission Date: 20120608
  Serious: Yes (Death, Hospitalization)
  Sender: FDA-Public Use
  Company Number: ES-ROCHE-1038435

PATIENT
  Sex: Female
  Weight: 49 kg

DRUGS (3)
  1. AVASTIN [Suspect]
     Indication: BREAST CANCER
     Dosage: DATE OF LAST DOSE PRIOR TO SAE, 03 JAN 2012
     Route: 042
     Dates: start: 20110921, end: 20120206
  2. XELODA [Suspect]
     Indication: BREAST CANCER
     Dosage: DOSE REPORTED AS 42000 MG
     Route: 048
     Dates: start: 20110921, end: 20120304
  3. AVASTIN [Suspect]
     Dosage: PERMANENTLY DISCONTINUED
     Dates: end: 20120304

REACTIONS (1)
  - HYPERTRANSAMINASAEMIA [None]
